FAERS Safety Report 19862919 (Version 2)
Quarter: 2021Q3

REPORT INFORMATION
  Report Type: Other
  Country: US (occurrence: US)
  Receive Date: 20210921
  Receipt Date: 20210922
  Transmission Date: 20211014
  Serious: Yes (Death, Hospitalization)
  Sender: FDA-Public Use
  Company Number: US-ROCHE-2856971

PATIENT
  Age: 60 Year
  Sex: Female
  Weight: 67.19 kg

DRUGS (2)
  1. OCREVUS [Suspect]
     Active Substance: OCRELIZUMAB
     Indication: MULTIPLE SCLEROSIS
     Dosage: DATE OF TREATMENT: 16/JAN/2020, 31/JAN/2020, 15/JUL/2020 AND 15/JAN/2021
     Route: 042
     Dates: start: 20200116, end: 20200131
  2. OCREVUS [Suspect]
     Active Substance: OCRELIZUMAB
     Indication: SECONDARY PROGRESSIVE MULTIPLE SCLEROSIS
     Route: 042
     Dates: start: 20200715, end: 20210505

REACTIONS (2)
  - COVID-19 [Fatal]
  - Pneumonia mycoplasmal [Unknown]

NARRATIVE: CASE EVENT DATE: 202004
